FAERS Safety Report 21839911 (Version 1)
Quarter: 2023Q1

REPORT INFORMATION
  Report Type: Spontaneous
  Country: DE (occurrence: DE)
  Receive Date: 20230110
  Receipt Date: 20230110
  Transmission Date: 20230417
  Serious: Yes (Death, Hospitalization)
  Sender: FDA-Public Use
  Company Number: DE-009507513-2301DEU000598

PATIENT
  Age: 71 Year
  Sex: Male
  Weight: 70.5 kg

DRUGS (3)
  1. CARBOPLATIN [Suspect]
     Active Substance: CARBOPLATIN
     Indication: Non-small cell lung cancer
     Dosage: 290 MG (1ST LINE)
     Route: 065
     Dates: start: 20221202, end: 20221202
  2. PEMETREXED [Suspect]
     Active Substance: PEMETREXED
     Indication: Non-small cell lung cancer
     Dosage: 630 MG (1ST LINE)
     Route: 065
     Dates: start: 20221202, end: 20221202
  3. PEMBROLIZUMAB [Suspect]
     Active Substance: PEMBROLIZUMAB
     Indication: Non-small cell lung cancer
     Dosage: 200 MG (1ST LINE)
     Route: 065
     Dates: start: 20221021, end: 20221202

REACTIONS (2)
  - Death [Fatal]
  - Leukopenia [Recovered/Resolved]

NARRATIVE: CASE EVENT DATE: 20221215
